FAERS Safety Report 7915786-9 (Version None)
Quarter: 2011Q4

REPORT INFORMATION
  Report Type: 
  Country: None (occurrence: None)
  Receive Date: 20111115
  Receipt Date: 20111102
  Transmission Date: 20120403
  Serious: No
  Sender: FDA-Public Use
  Company Number: FR-PFIZER INC-2011096448

PATIENT
  Sex: Female

DRUGS (2)
  1. ZARONTIN [Suspect]
     Indication: EPILEPSY
     Dosage: 10 ML DAILY DIVIDED INTO 2 INTAKES
     Route: 048
  2. LAMICTAL [Concomitant]

REACTIONS (1)
  - NO ADVERSE EVENT [None]
